FAERS Safety Report 10051444 (Version 3)
Quarter: 2014Q2

REPORT INFORMATION
  Report Type: Report from Study
  Country: FR (occurrence: FR)
  Receive Date: 20140401
  Receipt Date: 20140424
  Transmission Date: 20141212
  Serious: Yes (Hospitalization)
  Sender: FDA-Public Use
  Company Number: FR-CELGENEUS-056-21660-14033492

PATIENT
  Age: 77 Year
  Sex: Male

DRUGS (7)
  1. ABRAXANE [Suspect]
     Indication: PANCREATIC CARCINOMA METASTATIC
     Route: 041
     Dates: start: 20140311, end: 20140311
  2. ABRAXANE [Suspect]
     Route: 041
     Dates: start: 20140327
  3. 5-FLUOURACIL BOLUS [Suspect]
     Indication: PANCREATIC CARCINOMA METASTATIC
     Route: 065
     Dates: start: 20140311
  4. 5-FLUOURACIL BOLUS [Suspect]
     Route: 065
  5. 5-FLUOURACIL BOLUS [Suspect]
     Route: 065
     Dates: start: 20140311
  6. 5-FLUOURACIL BOLUS [Suspect]
     Route: 065
  7. FOLINIC ACID [Suspect]
     Indication: PANCREATIC CARCINOMA METASTATIC
     Route: 065
     Dates: start: 20140311

REACTIONS (1)
  - Colitis [Recovered/Resolved]
